FAERS Safety Report 25484497 (Version 1)
Quarter: 2025Q2

REPORT INFORMATION
  Report Type: Spontaneous
  Country: US (occurrence: None)
  Receive Date: 20250626
  Receipt Date: 20250626
  Transmission Date: 20250716
  Serious: No
  Sender: FDA-CTU
  Company Number: None

PATIENT
  Age: 12 Year
  Sex: Female

DRUGS (6)
  1. DUPIXENT [Suspect]
     Active Substance: DUPILUMAB
     Indication: Asthma
     Dosage: FREQUENCY : EVERY OTHER WEEK;?
     Route: 058
     Dates: start: 20250410
  2. ZYRTEC [Concomitant]
     Active Substance: CETIRIZINE HYDROCHLORIDE
  3. IPRATROPIUM NEB SOL [Concomitant]
  4. AZELASTINE [Concomitant]
     Active Substance: AZELASTINE
  5. ALBUTEROL [Concomitant]
     Active Substance: ALBUTEROL
  6. VENTOLIN INH [Concomitant]

REACTIONS (1)
  - Asthma [None]

NARRATIVE: CASE EVENT DATE: 20250612
